FAERS Safety Report 15357606 (Version 1)
Quarter: 2018Q3

REPORT INFORMATION
  Report Type: Spontaneous
  Country: RO (occurrence: RO)
  Receive Date: 20180906
  Receipt Date: 20180906
  Transmission Date: 20181010
  Serious: Yes (Hospitalization)
  Sender: FDA-Public Use
  Company Number: RO-SA-2018SA237287

PATIENT
  Age: 39 Year
  Sex: Female

DRUGS (1)
  1. ENOXAPARIN SODIUM. [Suspect]
     Active Substance: ENOXAPARIN SODIUM
     Indication: HYPERCOAGULATION
     Dosage: 0.4 ML, QD
     Route: 065

REACTIONS (4)
  - Exposure during pregnancy [Unknown]
  - Ureaplasma infection [Unknown]
  - Anaemia [Unknown]
  - Blood type incompatibility [Unknown]
